FAERS Safety Report 4706268-6 (Version None)
Quarter: 2005Q2

REPORT INFORMATION
  Report Type: 
  Country: None (occurrence: None)
  Receive Date: 20050629
  Receipt Date: 20050620
  Transmission Date: 20051028
  Serious: Yes (Hospitalization, Other)
  Sender: FDA-Public Use
  Company Number: 8010880

PATIENT

DRUGS (2)
  1. KEPPRA [Suspect]
  2. ANTIEPILEPTIC DRUG [Concomitant]

REACTIONS (1)
  - STATUS EPILEPTICUS [None]
